FAERS Safety Report 21979225 (Version 1)
Quarter: 2023Q1

REPORT INFORMATION
  Report Type: Spontaneous
  Country: US (occurrence: None)
  Receive Date: 20230210
  Receipt Date: 20230210
  Transmission Date: 20230418
  Serious: Yes (Hospitalization, Other)
  Sender: FDA-Public Use
  Company Number: 2023A031597

PATIENT
  Age: 67 Year
  Sex: Female
  Weight: 56.2 kg

DRUGS (1)
  1. BUDESONIDE\FORMOTEROL\GLYCOPYRRONIUM [Suspect]
     Active Substance: BUDESONIDE\FORMOTEROL\GLYCOPYRRONIUM
     Indication: Chronic obstructive pulmonary disease
     Dosage: 2 INHALATIONS, 2 TIMES A DAY
     Route: 055

REACTIONS (9)
  - Pneumonia [Unknown]
  - Oxygen saturation decreased [Unknown]
  - Amnesia [Unknown]
  - Loss of consciousness [Unknown]
  - Dyspnoea [Unknown]
  - Intentional product misuse [Unknown]
  - Device use issue [Unknown]
  - Drug dose omission by device [Unknown]
  - Device delivery system issue [Unknown]

NARRATIVE: CASE EVENT DATE: 20210101
